FAERS Safety Report 8093019-3 (Version None)
Quarter: 2012Q1

REPORT INFORMATION
  Report Type: 
  Country: None (occurrence: None)
  Receive Date: 20120128
  Receipt Date: 20110907
  Transmission Date: 20120608
  Serious: No
  Sender: FDA-Public Use
  Company Number: US-ABBOTT-10P-163-0629019-00

PATIENT
  Sex: Female
  Weight: 99.88 kg

DRUGS (11)
  1. PROZAC [Concomitant]
     Indication: FIBROMYALGIA
  2. HUMIRA [Suspect]
     Indication: PSORIATIC ARTHROPATHY
     Dates: start: 20080401
  3. HUMIRA [Suspect]
     Indication: PSORIASIS
     Dates: end: 20100101
  4. HYDROCODONE BITARTRATE [Concomitant]
     Indication: PAIN
  5. UNNAMED WATER PILL [Concomitant]
     Indication: HYPERTENSION
  6. TRAMADOL HCL [Concomitant]
     Indication: PAIN
     Dosage: 8 DAILY
  7. HUMIRA [Suspect]
     Indication: PSORIATIC ARTHROPATHY
  8. UNNAMED MEDICATION [Concomitant]
     Indication: HYPERTENSION
  9. UNNAMED MEDICATION [Concomitant]
     Indication: HYPOTONIA
  10. XANAX [Concomitant]
     Indication: INSOMNIA
     Dosage: AT HS
  11. GABAPENTIN [Concomitant]
     Indication: NEURALGIA

REACTIONS (7)
  - SKIN LESION [None]
  - PAIN IN EXTREMITY [None]
  - SKIN WARM [None]
  - IMMUNE SYSTEM DISORDER [None]
  - OEDEMA PERIPHERAL [None]
  - SCAR [None]
  - STAPHYLOCOCCAL INFECTION [None]
